FAERS Safety Report 10378466 (Version 1)
Quarter: 2014Q3

REPORT INFORMATION
  Report Type: Spontaneous
  Country: US (occurrence: US)
  Receive Date: 20140812
  Receipt Date: 20140812
  Transmission Date: 20150326
  Serious: No
  Sender: FDA-Public Use
  Company Number: US-ASTRAZENECA-2014SE58499

PATIENT
  Sex: Female

DRUGS (1)
  1. SYMBICORT [Suspect]
     Active Substance: BUDESONIDE\FORMOTEROL FUMARATE DIHYDRATE
     Dosage: 160 4.5, 1 PUFF TWICE A DAY
     Route: 055
     Dates: start: 20140808

REACTIONS (6)
  - Wheezing [Unknown]
  - Off label use [Unknown]
  - Chest discomfort [Unknown]
  - Circumstance or information capable of leading to medication error [Unknown]
  - Blood pressure increased [Unknown]
  - Oropharyngeal discomfort [Unknown]

NARRATIVE: CASE EVENT DATE: 20140808
